FAERS Safety Report 4884429-3 (Version None)
Quarter: 2006Q1

REPORT INFORMATION
  Report Type: 
  Country: None (occurrence: None)
  Receive Date: 20060117
  Receipt Date: 20060117
  Transmission Date: 20060701
  Serious: Yes (Hospitalization)
  Sender: FDA-Public Use
  Company Number: None

PATIENT
  Age: 23 Year
  Sex: Female

DRUGS (6)
  1. PREDNISONE [Suspect]
     Dosage: 40 MG X 4 DAYS PO ; 30 MG X 4 DAYS PO; 20 MG X 4 DAYS PO; 10 MG X 4 DAYS PO
     Route: 048
     Dates: start: 20040517, end: 20040601
  2. ALBUTEROL SULFATE AUTOHALER [Concomitant]
  3. DECONAMINE SR [Concomitant]
  4. LORAZEPAM [Concomitant]
  5. BENADRYL [Concomitant]
  6. AMBIEN [Concomitant]

REACTIONS (12)
  - ANXIETY [None]
  - DIZZINESS [None]
  - HEADACHE [None]
  - INAPPROPRIATE AFFECT [None]
  - INSOMNIA [None]
  - MOOD ALTERED [None]
  - MUSCULAR WEAKNESS [None]
  - NAUSEA [None]
  - POLLAKIURIA [None]
  - RESTLESSNESS [None]
  - THIRST [None]
  - VERTIGO [None]
